FAERS Safety Report 8192172-0 (Version None)
Quarter: 2012Q1

REPORT INFORMATION
  Report Type: 
  Country: None (occurrence: None)
  Receive Date: 20120307
  Receipt Date: 20120306
  Transmission Date: 20120608
  Serious: Yes (Other)
  Sender: FDA-Public Use
  Company Number: US-PFIZER INC-2012048382

PATIENT
  Sex: Male

DRUGS (7)
  1. METOPROLOL TARTRATE [Concomitant]
     Dosage: 25 MG, UNK
  2. LISINOPRIL [Concomitant]
     Dosage: 5 MG, UNK
  3. NEURONTIN [Concomitant]
     Dosage: 300 MG, UNK
  4. PLAVIX [Concomitant]
     Dosage: 75 MG, UNK
  5. LIPITOR [Suspect]
     Dosage: 80 MG, 1X/DAY
  6. NITROSTAT [Suspect]
     Indication: CHEST PAIN
     Dosage: 0.4 MG, AS NEEDED (TAKE 1 TABLET EVERY 5MIN AS NEEDED FOR CHEST PAIN UPTO 3 TABS TOTAL)
  7. ASPIRIN [Concomitant]
     Dosage: 81 MG, UNK

REACTIONS (1)
  - MYOCARDIAL INFARCTION [None]
